FAERS Safety Report 10779969 (Version 1)
Quarter: 2015Q1

REPORT INFORMATION
  Report Type: Spontaneous
  Country: CA (occurrence: CA)
  Receive Date: 20150210
  Receipt Date: 20150210
  Transmission Date: 20150721
  Serious: Yes (Other)
  Sender: FDA-Public Use
  Company Number: CA-BAYER-2015-015374

PATIENT
  Age: 71 Year
  Sex: Female
  Weight: 78.5 kg

DRUGS (2)
  1. GADOVIST [Suspect]
     Active Substance: GADOBUTROL
     Indication: MENINGIOMA
  2. GADOVIST [Suspect]
     Active Substance: GADOBUTROL
     Indication: SCAN BRAIN
     Dosage: 7 ML, ONCE
     Route: 042
     Dates: start: 20150130, end: 20150130

REACTIONS (5)
  - Paraesthesia [Unknown]
  - Cardiac disorder [None]
  - Dyspnoea [Unknown]
  - Wheezing [Unknown]
  - Unresponsive to stimuli [Unknown]

NARRATIVE: CASE EVENT DATE: 20150130
